FAERS Safety Report 8969284 (Version 1)
Quarter: 2012Q4

REPORT INFORMATION
  Report Type: 
  Country: US (occurrence: US)
  Receive Date: 20121218
  Receipt Date: 20121218
  Transmission Date: 20130627
  Serious: Yes (Other)
  Sender: FDA-Public Use
  Company Number: US-BRISTOL-MYERS SQUIBB COMPANY-16684334

PATIENT
  Age: 51 Year
  Sex: Female

DRUGS (4)
  1. ABILIFY TABS 2 MG [Suspect]
     Indication: DEPRESSION
     Dosage: 1DF: 1/2 tab
  2. ABILIFY TABS 2 MG [Suspect]
     Indication: POST-TRAUMATIC STRESS DISORDER
     Dosage: 1DF: 1/2 tab
  3. PROZAC [Suspect]
     Indication: POST-TRAUMATIC STRESS DISORDER
  4. PROZAC [Suspect]
     Indication: DEPRESSION

REACTIONS (1)
  - Self-injurious ideation [Unknown]
